FAERS Safety Report 9314820 (Version 3)
Quarter: 2013Q2

REPORT INFORMATION
  Report Type: Spontaneous
  Country: CZ (occurrence: CZ)
  Receive Date: 20130529
  Receipt Date: 20130619
  Transmission Date: 20140414
  Serious: Yes (Hospitalization)
  Sender: FDA-Public Use
  Company Number: CZ-PFIZER INC-2013160268

PATIENT
  Age: 16 Year
  Sex: Female

DRUGS (2)
  1. IBUPROFEN [Suspect]
  2. PARACETAMOL [Suspect]

REACTIONS (2)
  - Overdose [Unknown]
  - Malaise [Unknown]
